FAERS Safety Report 13864491 (Version 1)
Quarter: 2017Q3

REPORT INFORMATION
  Report Type: Spontaneous
  Country: US (occurrence: US)
  Receive Date: 20170814
  Receipt Date: 20170814
  Transmission Date: 20171127
  Serious: No
  Sender: FDA-Public Use
  Company Number: US-009507513-1708USA001550

PATIENT

DRUGS (1)
  1. KEYTRUDA [Suspect]
     Active Substance: PEMBROLIZUMAB
     Dosage: A DOSE (WHICH WAS ^TRANSFERRED TO A 50 ML BAG AND WAS INFUSED OVER 15 MINUTES^), UNK

REACTIONS (2)
  - Product preparation error [Unknown]
  - Incorrect drug administration duration [Unknown]
